FAERS Safety Report 25230594 (Version 1)
Quarter: 2025Q2

REPORT INFORMATION
  Report Type: Spontaneous
  Country: FR (occurrence: FR)
  Receive Date: 20250423
  Receipt Date: 20250423
  Transmission Date: 20250717
  Serious: Yes (Other)
  Sender: SANDOZ
  Company Number: FR-NOVPHSZ-PHHY2016FR135719

PATIENT
  Age: 26 Year
  Sex: Female

DRUGS (36)
  1. AMPHOTERICIN B [Suspect]
     Active Substance: AMPHOTERICIN B
     Indication: Bronchopulmonary aspergillosis
     Dosage: 180 MG, QD
     Route: 042
  2. AMPHOTERICIN B [Suspect]
     Active Substance: AMPHOTERICIN B
     Indication: Bronchopulmonary aspergillosis
     Dosage: 180 MG, QD
     Route: 042
  3. AMPHOTERICIN B [Suspect]
     Active Substance: AMPHOTERICIN B
     Indication: Product used for unknown indication
     Route: 048
  4. NICARDIPINE [Suspect]
     Active Substance: NICARDIPINE
     Indication: Product used for unknown indication
     Dosage: 50 MG, ONCE A DAY
     Route: 042
  5. ACYCLOVIR [Concomitant]
     Active Substance: ACYCLOVIR
     Indication: Product used for unknown indication
     Dosage: 250 MG, QD
     Route: 048
  6. DEXTROSE [Concomitant]
     Active Substance: DEXTROSE MONOHYDRATE
     Indication: Product used for unknown indication
     Route: 065
  7. FUROSEMIDE [Concomitant]
     Active Substance: FUROSEMIDE
     Indication: Product used for unknown indication
     Dosage: 80 MG, QD
     Route: 042
  8. GABAPENTIN [Concomitant]
     Active Substance: GABAPENTIN
     Dosage: 10 MG, QD
     Route: 048
  9. GABAPENTIN [Concomitant]
     Active Substance: GABAPENTIN
     Dosage: 10 MG, BID
     Route: 048
  10. GABAPENTIN [Concomitant]
     Active Substance: GABAPENTIN
     Indication: Product used for unknown indication
     Dosage: 10 MG, BID
     Route: 048
  11. IMIPENEM [Concomitant]
     Active Substance: IMIPENEM
     Indication: Product used for unknown indication
     Route: 042
  12. METOCLOPRAMIDE [Concomitant]
     Active Substance: METOCLOPRAMIDE
     Indication: Product used for unknown indication
     Dosage: 20 MG, TID
     Route: 048
  13. POTASSIUM CHLORIDE [Concomitant]
     Active Substance: POTASSIUM CHLORIDE
     Indication: Product used for unknown indication
     Route: 065
  14. VANCOMYCIN [Concomitant]
     Active Substance: VANCOMYCIN
     Indication: Product used for unknown indication
     Dosage: 2000 MG, QD
     Route: 042
  15. ALPRAZOLAM [Interacting]
     Active Substance: ALPRAZOLAM
     Indication: Product used for unknown indication
     Dosage: 0.25 MG, TWO TIMES A DAY
     Route: 048
  16. ALPRAZOLAM [Interacting]
     Active Substance: ALPRAZOLAM
     Indication: Product used for unknown indication
     Dosage: 0.5 MG, QD
     Route: 048
  17. ALPRAZOLAM [Interacting]
     Active Substance: ALPRAZOLAM
     Indication: Product used for unknown indication
  18. CIPROFLOXACIN [Interacting]
     Active Substance: CIPROFLOXACIN
     Dosage: 200 MG, TWO TIMES A DAY
     Route: 042
  19. CIPROFLOXACIN [Interacting]
     Active Substance: CIPROFLOXACIN
     Indication: Product used for unknown indication
     Dosage: 400 MG, QD
     Route: 042
  20. METHYLPREDNISOLONE [Interacting]
     Active Substance: METHYLPREDNISOLONE
     Indication: Product used for unknown indication
     Dosage: 50 MG, QD
     Route: 048
  21. METHYLPREDNISOLONE [Interacting]
     Active Substance: METHYLPREDNISOLONE
     Indication: Product used for unknown indication
  22. METHYLPREDNISOLONE [Interacting]
     Active Substance: METHYLPREDNISOLONE
     Indication: Product used for unknown indication
  23. ACETAMINOPHEN [Interacting]
     Active Substance: ACETAMINOPHEN
     Dosage: 1000 MG,
     Route: 048
  24. ACETAMINOPHEN [Interacting]
     Active Substance: ACETAMINOPHEN
     Indication: Product used for unknown indication
     Dosage: 1000 MG, TID
     Route: 048
  25. ACETAMINOPHEN [Interacting]
     Active Substance: ACETAMINOPHEN
     Dosage: 300 MG, QD
     Route: 048
  26. VENLAFAXINE [Interacting]
     Active Substance: VENLAFAXINE HYDROCHLORIDE
     Indication: Product used for unknown indication
     Dosage: 37.5 MG, QD
     Route: 048
  27. VENLAFAXINE [Interacting]
     Active Substance: VENLAFAXINE HYDROCHLORIDE
     Indication: Product used for unknown indication
  28. VENLAFAXINE [Interacting]
     Active Substance: VENLAFAXINE HYDROCHLORIDE
     Indication: Product used for unknown indication
  29. VORICONAZOLE [Interacting]
     Active Substance: VORICONAZOLE
     Dosage: 200 MG, BID
     Route: 042
  30. VORICONAZOLE [Interacting]
     Active Substance: VORICONAZOLE
     Indication: Bronchopulmonary aspergillosis
     Dosage: 300 MG, BID
     Route: 042
  31. VORICONAZOLE [Interacting]
     Active Substance: VORICONAZOLE
     Dosage: 300 MG, BID
     Route: 042
  32. VORICONAZOLE [Interacting]
     Active Substance: VORICONAZOLE
     Dosage: 400 MG,QD
     Route: 042
  33. VORICONAZOLE [Interacting]
     Active Substance: VORICONAZOLE
     Dosage: 400 MG, BID
     Route: 042
  34. VORICONAZOLE [Interacting]
     Active Substance: VORICONAZOLE
     Dosage: 600 MG, QD
     Route: 042
  35. VORICONAZOLE [Interacting]
     Active Substance: VORICONAZOLE
     Dosage: 600 MG,QD
     Route: 042
  36. ZOLPIDEM TARTRATE [Interacting]
     Active Substance: ZOLPIDEM TARTRATE
     Indication: Product used for unknown indication
     Dosage: 10 MG, QD
     Route: 048

REACTIONS (9)
  - Aspergillus infection [Unknown]
  - Haemoptysis [Recovered/Resolved]
  - Drug level below therapeutic [Recovered/Resolved]
  - Drug interaction [Recovered/Resolved]
  - Drug level decreased [Recovered/Resolved]
  - Drug level increased [Recovered/Resolved]
  - Cough [Recovered/Resolved]
  - Vomiting [Recovered/Resolved]
  - Treatment failure [Unknown]
